FAERS Safety Report 5449920-X (Version None)
Quarter: 2007Q3

REPORT INFORMATION
  Report Type: 
  Country: None (occurrence: None)
  Receive Date: 20070912
  Receipt Date: 20070910
  Transmission Date: 20080115
  Serious: Yes (Other)
  Sender: FDA-Public Use
  Company Number: GB-BAYER-200710959BNE

PATIENT
  Age: 61 Year
  Sex: Male

DRUGS (1)
  1. RENNIE [Suspect]
     Indication: HIATUS HERNIA

REACTIONS (2)
  - NEPHROLITHIASIS [None]
  - PAIN [None]
